FAERS Safety Report 9954274 (Version 2)
Quarter: 2014Q1

REPORT INFORMATION
  Report Type: Spontaneous
  Country: US (occurrence: US)
  Receive Date: 20140304
  Receipt Date: 20140313
  Transmission Date: 20141002
  Serious: Yes (Death)
  Sender: FDA-Public Use
  Company Number: US-JNJFOC-20140301225

PATIENT
  Age: 71 Year
  Sex: Male

DRUGS (10)
  1. IMBRUVICA [Suspect]
     Indication: MANTLE CELL LYMPHOMA
     Route: 048
     Dates: start: 20140110, end: 20140129
  2. IMBRUVICA [Suspect]
     Indication: MANTLE CELL LYMPHOMA
     Route: 048
     Dates: start: 201402
  3. ASPIRIN [Concomitant]
  4. RANITIDINE [Concomitant]
  5. COMPAZINE [Concomitant]
  6. BACTRIM [Concomitant]
  7. VITAMIN D [Concomitant]
  8. CITALOPRAM [Concomitant]
     Indication: DEPRESSION
  9. ACYCLOVIR [Concomitant]
  10. GABAPENTIN [Concomitant]

REACTIONS (2)
  - Myocardial infarction [Fatal]
  - Rash [Recovered/Resolved]
